FAERS Safety Report 24527118 (Version 1)
Quarter: 2024Q4

REPORT INFORMATION
  Report Type: Report from Study
  Country: US (occurrence: US)
  Receive Date: 20241021
  Receipt Date: 20241021
  Transmission Date: 20250115
  Serious: No
  Sender: ROCHE
  Company Number: US-ROCHE-3473922

PATIENT
  Age: 59 Year
  Sex: Female

DRUGS (2)
  1. COTELLIC [Suspect]
     Active Substance: COBIMETINIB
     Indication: Histiocytosis
     Dosage: DATE OF TREATMENT 24/JUL/2022? FREQUENCY TEXT:DAILY
     Route: 048
  2. COTELLIC [Suspect]
     Active Substance: COBIMETINIB
     Indication: Erdheim-Chester disease

REACTIONS (3)
  - Pain [Unknown]
  - Off label use [Unknown]
  - Dermatitis contact [Not Recovered/Not Resolved]
